FAERS Safety Report 10038912 (Version 1)
Quarter: 2014Q1

REPORT INFORMATION
  Report Type: Report from Study
  Country: BR (occurrence: BR)
  Receive Date: 20140326
  Receipt Date: 20140326
  Transmission Date: 20141002
  Serious: Yes (Hospitalization, Other)
  Sender: FDA-Public Use
  Company Number: PHHY2014BR035190

PATIENT
  Age: 90 Year
  Sex: Female
  Weight: 80 kg

DRUGS (9)
  1. EXELON PATCH [Suspect]
     Indication: OFF LABEL USE
     Dosage: 9 MG/ 5 CM2 EVERY 24 HOURS (DAILY DOSE: 4.6 MG/ 24 HOURS)
     Route: 062
     Dates: start: 201308, end: 201309
  2. EXELON PATCH [Suspect]
     Dosage: 18 MG/10 CM2 EVERY 24 HOURS (DAILY DOSE: 9.5 MG/ 24 HOURS)
     Route: 062
     Dates: start: 201309, end: 201309
  3. EXELON PATCH [Suspect]
     Dosage: 9 MG/ 5 CM2 EVERY 24 HOURS (DAILY DOSE: 4.6 MG/ 24 HOURS)
     Route: 062
     Dates: start: 201309, end: 201310
  4. SERENATA [Concomitant]
     Indication: DEPRESSION
     Dosage: 1 DF, DAILY
  5. LEXAPRO [Concomitant]
     Indication: DEPRESSION
     Dosage: 2 DF, DAILY
  6. DIAMICRON [Concomitant]
     Indication: DIABETES MELLITUS
     Dosage: 1 DF, DAILY
  7. SELOZOK [Concomitant]
     Indication: CARDIAC DISORDER
     Dosage: 1 DF, DAILY
  8. VYTORIN [Concomitant]
     Indication: CARDIAC DISORDER
     Dosage: 1 DF DAILY 1 YEAR AGO
  9. GUTTALAX [Concomitant]
     Indication: CONSTIPATION
     Dosage: 8 GTT, QD

REACTIONS (5)
  - Pneumonia [Recovering/Resolving]
  - Suicidal behaviour [Unknown]
  - Abnormal behaviour [Not Recovered/Not Resolved]
  - Amnesia [Not Recovered/Not Resolved]
  - Drug ineffective [Unknown]
